FAERS Safety Report 10449617 (Version 2)
Quarter: 2014Q3

REPORT INFORMATION
  Report Type: Spontaneous
  Country: US (occurrence: US)
  Receive Date: 20140912
  Receipt Date: 20140912
  Transmission Date: 20150326
  Serious: Yes (Life-Threatening, Hospitalization, Other)
  Sender: FDA-Public Use
  Company Number: US-RECKITT BENCKISER PHARMACEUTICAL, INC-RB-68354-2014

PATIENT
  Age: 69 Year
  Sex: Male

DRUGS (10)
  1. SYNTHROID [Concomitant]
     Active Substance: LEVOTHYROXINE SODIUM
     Indication: THYROID DISORDER
     Dosage: DOSING DETAILS UNKNOWN
     Route: 048
  2. SUBOXONE [Suspect]
     Active Substance: BUPRENORPHINE HYDROCHLORIDE\NALOXONE HYDROCHLORIDE
     Indication: PAIN
     Dosage: DOSE UNKNOWN TAKEN DAILY 3 A DAY
     Route: 060
     Dates: start: 2010
  3. LORAZEPAM. [Suspect]
     Active Substance: LORAZEPAM
     Indication: ANXIETY
     Dosage: DOSING DETAILS UNKNOWN
     Route: 048
  4. LORAZEPAM. [Suspect]
     Active Substance: LORAZEPAM
     Dosage: TOOK 60 PILLS IN A SUICIDE ATTEMPT, TOTAL
     Route: 048
     Dates: start: 20140523, end: 20140523
  5. UNSPECIFIED ANTIHYPERTENSIVE [Concomitant]
     Active Substance: UNSPECIFIED INGREDIENT
     Indication: HYPERTENSION
     Dosage: DOSING DETAILS UNKNOWN
     Route: 048
  6. SUBOXONE [Suspect]
     Active Substance: BUPRENORPHINE HYDROCHLORIDE\NALOXONE HYDROCHLORIDE
     Indication: PAIN
     Dosage: DOSE UNKNOWN TAKEN DAILY 3 A DAY
     Route: 060
     Dates: end: 2012
  7. SUBUTEX [Suspect]
     Active Substance: BUPRENORPHINE HYDROCHLORIDE
     Indication: PAIN
     Dosage: DOSE UNKNOWN TAKEN DAILY 3 A DAY
     Route: 060
     Dates: start: 2012
  8. EFFEXOR [Concomitant]
     Active Substance: VENLAFAXINE HYDROCHLORIDE
     Indication: DEPRESSION
     Dosage: 75 MG, DAILY
     Route: 048
  9. BUPRENORPHINE GENERIC TAB [Suspect]
     Active Substance: BUPRENORPHINE
     Indication: PAIN
     Dosage: CUTTING TABLETS, 20 MG DAILY
     Route: 060
     Dates: end: 20140520
  10. LEVODOPA [Concomitant]
     Active Substance: LEVODOPA
     Indication: PARKINSON^S DISEASE
     Dosage: DOSING DETAILS UNKNOWN
     Route: 048

REACTIONS (10)
  - Economic problem [None]
  - Insomnia [Not Recovered/Not Resolved]
  - Pain [Not Recovered/Not Resolved]
  - Wrong technique in drug usage process [Recovered/Resolved]
  - Drug effect decreased [None]
  - Imprisonment [None]
  - Suicidal ideation [Not Recovered/Not Resolved]
  - Off label use [Recovered/Resolved]
  - Incorrect dose administered [None]
  - Suicide attempt [Recovered/Resolved]

NARRATIVE: CASE EVENT DATE: 2010
